FAERS Safety Report 17795257 (Version 1)
Quarter: 2020Q2

REPORT INFORMATION
  Report Type: Spontaneous
  Country: JP (occurrence: JP)
  Receive Date: 20200515
  Receipt Date: 20200515
  Transmission Date: 20200714
  Serious: Yes (Life-Threatening, Hospitalization, Other)
  Sender: FDA-Public Use
  Company Number: JP-INSUD PHARMA-2004JP00069

PATIENT

DRUGS (6)
  1. HYDROXYCHLOROQUINE [Suspect]
     Active Substance: HYDROXYCHLOROQUINE
     Indication: SYSTEMIC LUPUS ERYTHEMATOSUS
     Dosage: 200 MG
     Route: 065
  2. PREDNISOLONE. [Suspect]
     Active Substance: PREDNISOLONE
     Indication: SYSTEMIC LUPUS ERYTHEMATOSUS
     Dosage: 7.5 MG
     Route: 065
  3. ESTRASORB [Suspect]
     Active Substance: ESTRADIOL HEMIHYDRATE
     Indication: HORMONE THERAPY
     Route: 062
  4. PROGESTERONE. [Suspect]
     Active Substance: PROGESTERONE
     Indication: HORMONE THERAPY
     Dosage: 300 MG
     Route: 067
  5. TACROLIMUS MONOHYDRATE [Suspect]
     Active Substance: TACROLIMUS
     Indication: SYSTEMIC LUPUS ERYTHEMATOSUS
     Dosage: 4 MG
     Route: 065
  6. DYDROGESTERONE [Suspect]
     Active Substance: DYDROGESTERONE
     Indication: HORMONE THERAPY
     Dosage: 15 MILLIGRAM DAILY
     Route: 048

REACTIONS (11)
  - Vaginal haemorrhage [Recovered/Resolved]
  - Infarction [Recovered/Resolved]
  - Pre-eclampsia [Recovered/Resolved]
  - Placenta accreta [Recovered/Resolved]
  - Maternal exposure during pregnancy [Unknown]
  - Hypogonadism [Recovered/Resolved]
  - Adrenal disorder [Recovered/Resolved]
  - Off label use [Unknown]
  - Hormone level abnormal [Recovered/Resolved]
  - Pelvic infection [Recovered/Resolved]
  - Proteinuria [Recovered/Resolved]
